FAERS Safety Report 9312368 (Version 1)
Quarter: 2013Q2

REPORT INFORMATION
  Report Type: Spontaneous
  Country: US (occurrence: US)
  Receive Date: 20130528
  Receipt Date: 20130528
  Transmission Date: 20140414
  Serious: Yes (Other)
  Sender: FDA-Public Use
  Company Number: US-ABBOTT-13P-163-1094677-00

PATIENT
  Sex: Male

DRUGS (5)
  1. DIVALPROEX SODIUM [Suspect]
     Indication: PRODUCT USED FOR UNKNOWN INDICATION
     Route: 065
  2. LAMICTAL [Suspect]
     Indication: BIPOLAR DISORDER
     Route: 048
     Dates: start: 20120321
  3. LYSERGIDE [Suspect]
     Indication: PRODUCT USED FOR UNKNOWN INDICATION
     Route: 065
  4. RITALIN [Concomitant]
     Indication: PRODUCT USED FOR UNKNOWN INDICATION
  5. ONDANSETRON HYDROCHLORIDE [Concomitant]
     Indication: PRODUCT USED FOR UNKNOWN INDICATION

REACTIONS (10)
  - Road traffic accident [Unknown]
  - Eating disorder [Unknown]
  - Abdominal pain upper [Unknown]
  - Nausea [Unknown]
  - Conversion disorder [Unknown]
  - Decreased appetite [Unknown]
  - Dizziness [Unknown]
  - Hypoaesthesia [Unknown]
  - Facial paresis [Unknown]
  - Muscular weakness [Unknown]
